FAERS Safety Report 24190322 (Version 1)
Quarter: 2024Q3

REPORT INFORMATION
  Report Type: Spontaneous
  Country: US (occurrence: None)
  Receive Date: 20240807
  Receipt Date: 20240807
  Transmission Date: 20241017
  Serious: No
  Sender: Public
  Company Number: None

PATIENT
  Age: 53 Year
  Sex: Female
  Weight: 91.8 kg

DRUGS (6)
  1. DUPIXENT [Suspect]
     Active Substance: DUPILUMAB
     Indication: Nasal inflammation
     Route: 058
     Dates: start: 20240624, end: 20240722
  2. XHANCE [Concomitant]
     Active Substance: FLUTICASONE PROPIONATE
  3. FLOVENT [Concomitant]
  4. PROGESTERONE [Concomitant]
     Active Substance: PROGESTERONE
  5. ESTRDIAL [Concomitant]
  6. DECONGESTANT NASAL SPRAY [Concomitant]

REACTIONS (8)
  - Myalgia [None]
  - Arthralgia [None]
  - Arthralgia [None]
  - Pain in extremity [None]
  - Arthralgia [None]
  - Pain in extremity [None]
  - Pain in extremity [None]
  - Pain in extremity [None]

NARRATIVE: CASE EVENT DATE: 20240701
